FAERS Safety Report 8454869 (Version 3)
Quarter: 2013Q2

REPORT INFORMATION
  Report Type: Spontaneous
  Country: FR (occurrence: FR)
  Receive Date: 20120312
  Receipt Date: 20130403
  Transmission Date: 20140414
  Serious: Yes (Hospitalization)
  Sender: FDA-Public Use
  Company Number: FR-ROCHE-1045669

PATIENT
  Age: 65 Year
  Sex: Female
  Weight: 72.8 kg

DRUGS (8)
  1. TOCILIZUMAB [Suspect]
     Indication: RHEUMATOID ARTHRITIS
     Route: 042
     Dates: start: 20100914, end: 20120110
  2. TOCILIZUMAB [Suspect]
     Dosage: THERAPY RESTARTED.
     Route: 065
  3. CORTANCYL [Concomitant]
     Route: 048
  4. HYDROCORTISONE [Concomitant]
     Route: 048
  5. DIFFU K [Concomitant]
     Route: 048
  6. PARACETAMOL [Concomitant]
     Route: 048
  7. METHOTREXATE [Concomitant]
     Route: 048
  8. SPECIAFOLDINE [Concomitant]
     Route: 048

REACTIONS (2)
  - Arrhythmia [Unknown]
  - Atrial fibrillation [Unknown]
